FAERS Safety Report 22356842 (Version 1)
Quarter: 2023Q2

REPORT INFORMATION
  Report Type: Report from Study
  Country: US (occurrence: US)
  Receive Date: 20230523
  Receipt Date: 20230523
  Transmission Date: 20230721
  Serious: No
  Sender: FDA-Public Use
  Company Number: US-INCYTE CORPORATION-2023IN004006

PATIENT

DRUGS (1)
  1. JAKAFI [Suspect]
     Active Substance: RUXOLITINIB
     Indication: Myelofibrosis
     Dosage: 11 MILLIGRAM, QD
     Route: 065

REACTIONS (5)
  - Infection [Unknown]
  - Night sweats [Unknown]
  - Incorrect dose administered [Unknown]
  - Hepatic function abnormal [Unknown]
  - Anaemia [Unknown]
